FAERS Safety Report 13598524 (Version 1)
Quarter: 2017Q2

REPORT INFORMATION
  Report Type: Spontaneous
  Country: FR (occurrence: FR)
  Receive Date: 20170531
  Receipt Date: 20170531
  Transmission Date: 20170830
  Serious: Yes (Hospitalization)
  Sender: FDA-Public Use
  Company Number: FR-JNJFOC-20170528121

PATIENT
  Age: 85 Year
  Sex: Female

DRUGS (11)
  1. VENLAFAXINE [Suspect]
     Active Substance: VENLAFAXINE HYDROCHLORIDE
     Indication: ANXIETY
     Route: 048
  2. DOMPERIDONE [Concomitant]
     Active Substance: DOMPERIDONE
     Route: 065
  3. YEAST DRIED [Concomitant]
     Route: 065
  4. MIANSERIN HYDROCHLORIDE [Suspect]
     Active Substance: MIANSERIN HYDROCHLORIDE
     Indication: ANXIETY
     Route: 048
     Dates: end: 20170314
  5. SERESTA [Concomitant]
     Active Substance: OXAZEPAM
     Route: 065
  6. SPASFON (PHLOROGLUCINOL, TRIMETHYLPHLOROGLUCINOL) [Concomitant]
     Active Substance: PHLOROGLUCINOL\1,3,5-TRIMETHOXYBENZENE
     Route: 065
  7. LOPERAMIDE [Concomitant]
     Active Substance: LOPERAMIDE
     Route: 065
  8. UVEDOSE [Concomitant]
     Active Substance: CHOLECALCIFEROL
     Route: 065
  9. LASILIX [Concomitant]
     Active Substance: FUROSEMIDE
     Route: 065
  10. NEBIVOLOL. [Concomitant]
     Active Substance: NEBIVOLOL
     Route: 065
  11. XARELTO [Suspect]
     Active Substance: RIVAROXABAN
     Indication: ATRIAL FIBRILLATION
     Route: 048
     Dates: end: 20170314

REACTIONS (2)
  - Hemiplegia [Recovering/Resolving]
  - Cerebral haematoma [Recovering/Resolving]

NARRATIVE: CASE EVENT DATE: 20170314
